FAERS Safety Report 15538822 (Version 3)
Quarter: 2024Q4

REPORT INFORMATION
  Report Type: Report from Study
  Country: IT (occurrence: IT)
  Receive Date: 20181022
  Receipt Date: 20241107
  Transmission Date: 20250115
  Serious: Yes (Hospitalization, Other)
  Sender: GLAXOSMITHKLINE
  Company Number: None

PATIENT
  Age: 30 Year
  Sex: Male

DRUGS (9)
  1. LAMOTRIGINE [Suspect]
     Active Substance: LAMOTRIGINE
     Indication: Drug abuse
     Dosage: 5 DF, TOTAL
     Route: 048
     Dates: start: 20180716, end: 20180716
  2. LEVETIRACETAM [Suspect]
     Active Substance: LEVETIRACETAM
     Indication: Drug abuse
     Dosage: 5 DF, TOTAL
     Route: 048
     Dates: start: 20180716, end: 20180716
  3. LANSOPRAZOLE [Suspect]
     Active Substance: LANSOPRAZOLE
     Indication: Drug abuse
     Dosage: 5 DF, TOTAL
     Route: 048
     Dates: start: 20180716, end: 20180716
  4. FUROSEMIDE [Suspect]
     Active Substance: FUROSEMIDE
     Indication: Drug abuse
     Dosage: 125 MG, TOTAL
     Route: 048
     Dates: start: 20180716, end: 20180716
  5. CARBAMAZEPINE [Suspect]
     Active Substance: CARBAMAZEPINE
     Indication: Drug abuse
     Dosage: 5 DF, TOTAL
     Route: 048
     Dates: start: 20180716, end: 20180716
  6. COUMADIN [Suspect]
     Active Substance: WARFARIN SODIUM
     Indication: Drug abuse
     Dosage: 5 DF, TOTAL
     Route: 048
     Dates: start: 20180716, end: 20180716
  7. VALPROATE SODIUM [Suspect]
     Active Substance: VALPROATE SODIUM
     Indication: Drug abuse
     Dosage: 5 DF, TOTAL
     Route: 048
     Dates: start: 20180716, end: 20180716
  8. SIMVASTATIN [Suspect]
     Active Substance: SIMVASTATIN
     Indication: Drug abuse
     Dosage: 100 MG TOTAL
     Route: 048
     Dates: start: 20180716, end: 20180716
  9. BISOPROLOL FUMARATE [Suspect]
     Active Substance: BISOPROLOL FUMARATE
     Indication: Drug abuse
     Dosage: 37.5 MG, TOTAL
     Route: 048
     Dates: start: 20180716, end: 20180716

REACTIONS (5)
  - Blood creatine phosphokinase increased [Recovering/Resolving]
  - Blood creatinine increased [Recovering/Resolving]
  - Sopor [Recovering/Resolving]
  - Drug abuse [Unknown]
  - Off label use [Unknown]

NARRATIVE: CASE EVENT DATE: 20180716
